FAERS Safety Report 10406496 (Version 1)
Quarter: 2014Q3

REPORT INFORMATION
  Report Type: Spontaneous
  Country: FR (occurrence: None)
  Receive Date: 20140821
  Receipt Date: 20140821
  Transmission Date: 20150326
  Serious: Yes (Hospitalization)
  Sender: FDA-Public Use
  Company Number: 7313153

PATIENT
  Age: 41 Year
  Sex: Female

DRUGS (7)
  1. KEPPRA [Suspect]
     Active Substance: LEVETIRACETAM
     Indication: PRODUCT USED FOR UNKNOWN INDICATION
     Dosage: 2 DF (1 DF, 2 IN 1 D), ORAL
     Route: 048
     Dates: start: 2009
  2. LANTUS [Suspect]
     Active Substance: INSULIN GLARGINE
     Indication: PRODUCT USED FOR UNKNOWN INDICATION
     Route: 058
  3. PARACETAMOL [Suspect]
     Active Substance: ACETAMINOPHEN
     Indication: PRODUCT USED FOR UNKNOWN INDICATION
     Route: 048
  4. LEVOTHYROX [Suspect]
     Active Substance: LEVOTHYROXINE
     Indication: PRODUCT USED FOR UNKNOWN INDICATION
     Dosage: ORAL?
     Route: 048
     Dates: start: 2009
  5. HYDROCORTISONE. [Suspect]
     Active Substance: HYDROCORTISONE
     Indication: PRODUCT USED FOR UNKNOWN INDICATION
     Route: 048
     Dates: start: 2009
  6. INEXIUM [Suspect]
     Active Substance: ESOMEPRAZOLE
     Indication: PRODUCT USED FOR UNKNOWN INDICATION
     Dosage: 1 DF (1 D, 1 IN 1 D), ORAL ?
     Route: 048
  7. MINIRIN [Suspect]
     Active Substance: DESMOPRESSIN ACETATE
     Indication: DIABETES INSIPIDUS
     Dosage: NASAL?
     Dates: start: 2010

REACTIONS (12)
  - Urinary tract infection [None]
  - Hyponatraemia [None]
  - Glycosylated haemoglobin increased [None]
  - Blood sodium increased [None]
  - Blood potassium decreased [None]
  - Ornithine transcarbamoylase deficiency [None]
  - Hyperammonaemia [None]
  - Reye^s syndrome [None]
  - Blood pressure decreased [None]
  - Haemoglobin decreased [None]
  - Platelet count decreased [None]
  - Dehydration [None]

NARRATIVE: CASE EVENT DATE: 20111010
